FAERS Safety Report 9823452 (Version 2)
Quarter: 2014Q1

REPORT INFORMATION
  Report Type: Spontaneous
  Country: US (occurrence: US)
  Receive Date: 20140116
  Receipt Date: 20140116
  Transmission Date: 20141002
  Serious: No
  Sender: FDA-Public Use
  Company Number: US-GILEAD-2011-0035243

PATIENT
  Age: 68 Year
  Sex: Female

DRUGS (3)
  1. LETAIRIS [Suspect]
     Indication: PULMONARY HYPERTENSION
     Route: 048
     Dates: start: 20101222, end: 20110106
  2. LETAIRIS [Suspect]
     Indication: DERMATOMYOSITIS
  3. LETAIRIS [Suspect]
     Indication: IDIOPATHIC PULMONARY FIBROSIS

REACTIONS (3)
  - Influenza like illness [Recovered/Resolved]
  - Lethargy [Recovered/Resolved]
  - Swelling [Recovered/Resolved]
